FAERS Safety Report 25470286 (Version 1)
Quarter: 2025Q2

REPORT INFORMATION
  Report Type: Report from Study
  Country: CA (occurrence: CA)
  Receive Date: 20250623
  Receipt Date: 20250623
  Transmission Date: 20250716
  Serious: Yes (Hospitalization)
  Sender: ABBVIE
  Company Number: CA-ABBVIE-6336658

PATIENT
  Sex: Male

DRUGS (1)
  1. SKYRIZI [Suspect]
     Active Substance: RISANKIZUMAB-RZAA
     Indication: Crohn^s disease
     Route: 058

REACTIONS (5)
  - Blood test abnormal [Unknown]
  - Pneumonia [Unknown]
  - Device related infection [Unknown]
  - Peripheral swelling [Unknown]
  - Musculoskeletal disorder [Unknown]
